FAERS Safety Report 6958461-X (Version None)
Quarter: 2010Q3

REPORT INFORMATION
  Report Type: 
  Country: None (occurrence: None)
  Receive Date: 20100831
  Receipt Date: 20100824
  Transmission Date: 20110219
  Serious: Yes (Other)
  Sender: FDA-Public Use
  Company Number: CA-ROCHE-720318

PATIENT
  Sex: Female
  Weight: 71.2 kg

DRUGS (3)
  1. BEVACIZUMAB [Suspect]
     Indication: GLIOBLASTOMA
     Dosage: FORM: INFUSION
     Route: 042
     Dates: start: 20100630
  2. DECADRON [Concomitant]
  3. MEDROXY [Concomitant]

REACTIONS (6)
  - BALANCE DISORDER [None]
  - HYPOAESTHESIA ORAL [None]
  - MUSCLE SPASMS [None]
  - SENSORY DISTURBANCE [None]
  - SKIN ULCER [None]
  - STOMATITIS [None]
